FAERS Safety Report 4294232-3 (Version None)
Quarter: 2004Q1

REPORT INFORMATION
  Report Type: 
  Country: None (occurrence: None)
  Receive Date: 20040211
  Receipt Date: 20040211
  Transmission Date: 20041129
  Serious: Yes (Life-Threatening, Disabling, Other)
  Sender: FDA-Public Use
  Company Number: None

PATIENT
  Age: 58 Year
  Sex: Female
  Weight: 55.3388 kg

DRUGS (3)
  1. ZETIA [Suspect]
     Indication: HYPERLIPIDAEMIA
     Dosage: 10 MG QD
     Dates: start: 20030122, end: 20031024
  2. PREVACID [Concomitant]
  3. EVISTA [Concomitant]

REACTIONS (7)
  - ABDOMINAL PAIN UPPER [None]
  - ANAPHYLACTIC SHOCK [None]
  - BLISTER [None]
  - DIARRHOEA [None]
  - DIZZINESS [None]
  - HEART RATE INCREASED [None]
  - URTICARIA [None]
